FAERS Safety Report 10967414 (Version 1)
Quarter: 2015Q1

REPORT INFORMATION
  Report Type: Spontaneous
  Country: US (occurrence: US)
  Receive Date: 20150330
  Receipt Date: 20150330
  Transmission Date: 20150721
  Serious: No
  Sender: FDA-Public Use
  Company Number: US-ASTRAZENECA-2014SE32867

PATIENT
  Age: 69 Year
  Sex: Male
  Weight: 107 kg

DRUGS (6)
  1. ZESTRIL [Suspect]
     Active Substance: LISINOPRIL
     Indication: HYPERTENSION
     Route: 048
     Dates: start: 1999
  2. CENTRUM SILVER FOR MEN [Concomitant]
  3. NEXIUM [Suspect]
     Active Substance: ESOMEPRAZOLE MAGNESIUM
     Indication: GASTROOESOPHAGEAL REFLUX DISEASE
     Route: 048
     Dates: start: 2004
  4. CRESTOR [Suspect]
     Active Substance: ROSUVASTATIN CALCIUM
     Indication: BLOOD CHOLESTEROL ABNORMAL
     Route: 048
     Dates: start: 2013
  5. ADVAIR HFA [Concomitant]
     Active Substance: FLUTICASONE PROPIONATE\SALMETEROL XINAFOATE
     Indication: ASTHMA
     Route: 055
  6. COQ10 [Concomitant]
     Active Substance: UBIDECARENONE

REACTIONS (6)
  - Dementia [Recovered/Resolved]
  - Headache [Unknown]
  - Drug dose omission [Unknown]
  - Memory impairment [Recovered/Resolved]
  - Blood cholesterol increased [Unknown]
  - Blood pressure increased [Recovered/Resolved with Sequelae]
